FAERS Safety Report 7354199-8 (Version None)
Quarter: 2011Q1

REPORT INFORMATION
  Report Type: 
  Country: None (occurrence: None)
  Receive Date: 20110316
  Receipt Date: 20110308
  Transmission Date: 20110831
  Serious: No
  Sender: FDA-Public Use
  Company Number: US-BIOGENIDEC-2009BI017544

PATIENT
  Sex: Female

DRUGS (2)
  1. TYSABRI [Suspect]
     Indication: MULTIPLE SCLEROSIS
     Route: 042
     Dates: start: 20090423, end: 20100311
  2. TYSABRI [Suspect]
     Route: 042
     Dates: start: 20101001

REACTIONS (17)
  - ATAXIA [None]
  - PROGRESSIVE MULTIPLE SCLEROSIS [None]
  - MEMORY IMPAIRMENT [None]
  - TREMOR [None]
  - FATIGUE [None]
  - FALL [None]
  - GAIT DISTURBANCE [None]
  - DRUG INEFFECTIVE [None]
  - MUSCLE SPASTICITY [None]
  - DYSGRAPHIA [None]
  - BALANCE DISORDER [None]
  - NEUROLOGICAL SYMPTOM [None]
  - MENTAL DISORDER [None]
  - DEPRESSION [None]
  - PAIN IN EXTREMITY [None]
  - HEAD INJURY [None]
  - MOBILITY DECREASED [None]
